FAERS Safety Report 12674281 (Version 2)
Quarter: 2017Q3

REPORT INFORMATION
  Report Type: Spontaneous
  Country: GB (occurrence: GB)
  Receive Date: 20160822
  Receipt Date: 20170803
  Transmission Date: 20171127
  Serious: Yes (Hospitalization, Other)
  Sender: FDA-Public Use
  Company Number: GB-IPCA LABORATORIES LIMITED-IPC201608-000678

PATIENT
  Age: 41 Year
  Sex: Female

DRUGS (4)
  1. PROPRANOLOL HYDROCHLORIDE TABLETS, USP [Suspect]
     Active Substance: PROPRANOLOL HYDROCHLORIDE
     Dosage: UNK,UNK,UNK
  2. VENLAFAXINE [Suspect]
     Active Substance: VENLAFAXINE HYDROCHLORIDE
     Dosage: UNK,UNK,UNK
  3. OLANZAPINE. [Suspect]
     Active Substance: OLANZAPINE
     Dosage: UNK,UNK,UNK
  4. QUETIAPINE FUMARATE. [Suspect]
     Active Substance: QUETIAPINE FUMARATE
     Dosage: UNK,UNK,UNK

REACTIONS (10)
  - Acute respiratory distress syndrome [Unknown]
  - Toxic leukoencephalopathy [Unknown]
  - Neuroleptic malignant syndrome [Unknown]
  - Toxicity to various agents [Unknown]
  - Seizure [Unknown]
  - Overdose [Unknown]
  - Cerebral infarction [Unknown]
  - Quadriparesis [Not Recovered/Not Resolved]
  - Pneumonia aspiration [Unknown]
  - Rhabdomyolysis [Unknown]
